FAERS Safety Report 7799560-2 (Version None)
Quarter: 2011Q4

REPORT INFORMATION
  Report Type: 
  Country: None (occurrence: None)
  Receive Date: 20111004
  Receipt Date: 20110928
  Transmission Date: 20120403
  Serious: Yes (Death)
  Sender: FDA-Public Use
  Company Number: 1000023702

PATIENT
  Age: 55 Year
  Sex: Male
  Weight: 96.16 kg

DRUGS (2)
  1. LUNESTA (ESZOPICLONE) (TABLETS) (ESZOPICLONE) [Concomitant]
  2. VIIBRYD [Suspect]
     Indication: DEPRESSION
     Dosage: 10 MG (10 MG, 1 IN 1 D), ORAL
     Route: 048
     Dates: start: 20110823

REACTIONS (3)
  - ASPHYXIA [None]
  - EMOTIONAL DISTRESS [None]
  - COMPLETED SUICIDE [None]
